FAERS Safety Report 15994600 (Version 1)
Quarter: 2019Q1

REPORT INFORMATION
  Report Type: Spontaneous
  Country: TH (occurrence: US)
  Receive Date: 20190222
  Receipt Date: 20190222
  Transmission Date: 20190418
  Serious: Yes (Hospitalization, Other)
  Sender: FDA-Public Use
  Company Number: TH-ASPEN-GLO2019US001370

PATIENT
  Age: 20 Year
  Sex: Female

DRUGS (1)
  1. BUSULFAN. [Suspect]
     Active Substance: BUSULFAN
     Indication: BONE MARROW CONDITIONING REGIMEN
     Dosage: 4374 AUC
     Route: 065

REACTIONS (1)
  - Venoocclusive liver disease [Recovered/Resolved]
